FAERS Safety Report 6638076-3 (Version None)
Quarter: 2010Q1

REPORT INFORMATION
  Report Type: 
  Country: None (occurrence: None)
  Receive Date: 20100317
  Receipt Date: 20100305
  Transmission Date: 20100710
  Serious: Yes (Hospitalization)
  Sender: FDA-Public Use
  Company Number: IT-PFIZER INC-2010023085

PATIENT
  Age: 65 Year
  Sex: Female

DRUGS (2)
  1. ADRIBLASTINA [Suspect]
     Indication: BREAST CANCER
     Dosage: 50 MG, CYCLIC
     Route: 042
     Dates: start: 20090826, end: 20091104
  2. CYCLOPHOSPHAMIDE [Suspect]
     Indication: BREAST CANCER
     Dosage: 500 MG, CYCLIC
     Route: 042
     Dates: start: 20090826, end: 20091104

REACTIONS (1)
  - FEBRILE NEUTROPENIA [None]
